FAERS Safety Report 6090126-1 (Version None)
Quarter: 2009Q1

REPORT INFORMATION
  Report Type: 
  Country: None (occurrence: None)
  Receive Date: 20090224
  Receipt Date: 20081212
  Transmission Date: 20090719
  Serious: No
  Sender: FDA-Public Use
  Company Number: US-ABBOTT-08P-163-0492743-00

PATIENT
  Sex: Female
  Weight: 98.064 kg

DRUGS (7)
  1. SIMCOR [Suspect]
     Indication: BLOOD CHOLESTEROL INCREASED
     Route: 048
     Dates: start: 20071204
  2. ASPIRIN [Concomitant]
     Indication: PROPHYLAXIS
     Route: 048
  3. WELLBUTRIN [Concomitant]
     Indication: DEPRESSION
     Route: 048
  4. GLUCOPHAGE [Concomitant]
     Indication: DIABETES MELLITUS
     Route: 048
  5. DIOVAN [Concomitant]
     Indication: HYPERTENSION
     Dosage: 160/25MG
     Route: 048
  6. ALEVE [Concomitant]
     Indication: ARTHRITIS
     Route: 048
  7. ALEVE [Concomitant]
     Indication: ARTHRALGIA

REACTIONS (5)
  - BURNING SENSATION [None]
  - HOT FLUSH [None]
  - MUSCLE TWITCHING [None]
  - NAUSEA [None]
  - PRURITUS GENERALISED [None]
